FAERS Safety Report 4277642-X (Version None)
Quarter: 2004Q1

REPORT INFORMATION
  Report Type: 
  Country: None (occurrence: None)
  Receive Date: 20040121
  Receipt Date: 20040114
  Transmission Date: 20041129
  Serious: Yes (Death)
  Sender: FDA-Public Use
  Company Number: US-JNJFOC-20040102767

PATIENT
  Age: 44 Year
  Sex: Male

DRUGS (1)
  1. DURAGESIC [Suspect]
     Indication: PAIN
     Dosage: 24 UG/HR, TRANSDERMAL
     Route: 062
     Dates: end: 20031201

REACTIONS (1)
  - DEATH [None]
